FAERS Safety Report 6315734-1 (Version None)
Quarter: 2009Q3

REPORT INFORMATION
  Report Type: 
  Country: None (occurrence: None)
  Receive Date: 20090819
  Receipt Date: 20080916
  Transmission Date: 20100115
  Serious: No
  Sender: FDA-Public Use
  Company Number: US-BAUSCH-2008BL004011

PATIENT
  Age: 72 Year
  Sex: Male

DRUGS (3)
  1. CROMOLYN SODIUM [Suspect]
     Indication: PROPHYLAXIS
     Route: 045
     Dates: start: 20080912
  2. ASPIRIN [Concomitant]
  3. ALLEGRA [Concomitant]
     Indication: HYPERSENSITIVITY
     Route: 048
     Dates: start: 20080912

REACTIONS (2)
  - CONDITION AGGRAVATED [None]
  - SNEEZING [None]
